FAERS Safety Report 8991193 (Version 2)
Quarter: 2013Q1

REPORT INFORMATION
  Report Type: Spontaneous
  Country: US (occurrence: None)
  Receive Date: 20121219
  Receipt Date: 20130307
  Transmission Date: 20140127
  Serious: Yes (Hospitalization)
  Sender: FDA-Public Use
  Company Number: LMI-2012-00427

PATIENT
  Age: 60 Year
  Sex: Male
  Weight: 133.36 kg

DRUGS (10)
  1. DEFINITY [Suspect]
     Indication: STRESS ECHOCARDIOGRAM
     Dosage: 1.7 ML OF DEFINTIY DILUTATED WITH 8.3 ML NORMAL SALINE (1 ML)
     Route: 042
     Dates: start: 20121204, end: 20121204
  2. TYLENOL (PARACETAMOL) [Concomitant]
  3. IBUPROFEN (IBUPROFEN) [Concomitant]
  4. HEPARIN (HEPARIN) [Concomitant]
  5. ZOFRAN (ONDANSETRON) [Concomitant]
  6. COREG (CARVEDILOL) [Concomitant]
  7. LASIX (FUROSEMIDE) [Concomitant]
  8. LISINOPRIL (LISINOPRIL) [Concomitant]
  9. PEPCID (FAMOTIDINE) [Concomitant]
  10. DOBUTAMINE [Suspect]
     Dates: start: 20121204, end: 20121204

REACTIONS (4)
  - Hypersensitivity [None]
  - Myocardial infarction [None]
  - Hypotension [None]
  - Tachycardia [None]
